FAERS Safety Report 19620374 (Version 1)
Quarter: 2021Q3

REPORT INFORMATION
  Report Type: Spontaneous
  Country: US (occurrence: US)
  Receive Date: 20210728
  Receipt Date: 20210728
  Transmission Date: 20211014
  Serious: No
  Sender: FDA-Public Use
  Company Number: None

PATIENT
  Age: 74 Year
  Sex: Female
  Weight: 81 kg

DRUGS (20)
  1. VITAMIN D3 [Concomitant]
     Active Substance: CHOLECALCIFEROL
  2. VICTOZA [Suspect]
     Active Substance: LIRAGLUTIDE
     Indication: TYPE 2 DIABETES MELLITUS
     Dosage: ?          QUANTITY:1 INJECTION(S);OTHER ROUTE:INJECTION UNDER THE SKIN?
  3. LOSARTAN. [Concomitant]
     Active Substance: LOSARTAN
  4. NOVOLOG FLEX INSULIN PEN [Concomitant]
  5. VICTOZA [Concomitant]
     Active Substance: LIRAGLUTIDE
  6. GABAPENTIN. [Concomitant]
     Active Substance: GABAPENTIN
  7. OXYGEN. [Concomitant]
     Active Substance: OXYGEN
  8. C?PAP MACHINE [Concomitant]
     Active Substance: DEVICE
  9. PEPCID [Concomitant]
     Active Substance: FAMOTIDINE
  10. CYMBALTA [Concomitant]
     Active Substance: DULOXETINE HYDROCHLORIDE
  11. LEVOTHYROXIN [Concomitant]
     Active Substance: LEVOTHYROXINE
  12. TRIAMCINOLON OINTMENT [Concomitant]
  13. TRAZODONE [Concomitant]
     Active Substance: TRAZODONE HYDROCHLORIDE
  14. BASAGLAR INSULIN KWIKPEN [Concomitant]
  15. OXYBUTYNIN. [Concomitant]
     Active Substance: OXYBUTYNIN CHLORIDE
  16. ATORVASTATIN [Concomitant]
     Active Substance: ATORVASTATIN
  17. ESOMEPRAZOLE. [Concomitant]
     Active Substance: ESOMEPRAZOLE MAGNESIUM
  18. LASIX [Concomitant]
     Active Substance: FUROSEMIDE
  19. PRAMIPEXOLE. [Concomitant]
     Active Substance: PRAMIPEXOLE
  20. BAYER LOW DOSE ASPIRIN [Concomitant]

REACTIONS (4)
  - Rash [None]
  - Pruritus [None]
  - Skin irritation [None]
  - Skin disorder [None]

NARRATIVE: CASE EVENT DATE: 20210601
